FAERS Safety Report 5641898-9 (Version None)
Quarter: 2008Q1

REPORT INFORMATION
  Report Type: 
  Country: None (occurrence: None)
  Receive Date: 20080131
  Receipt Date: 20071112
  Transmission Date: 20080703
  Serious: Yes (Other)
  Sender: FDA-Public Use
  Company Number: 163-21880-07110727

PATIENT
  Age: 57 Year
  Sex: Female

DRUGS (2)
  1. REVLIMID [Suspect]
     Indication: MULTIPLE MYELOMA
     Dosage: 25 MG, DAILY X21 DAYS, ORAL ; 25 MG, DAILY X21 DAYS, ORAL
     Route: 048
     Dates: start: 20070601, end: 20071015
  2. REVLIMID [Suspect]
     Indication: MULTIPLE MYELOMA
     Dosage: 25 MG, DAILY X21 DAYS, ORAL ; 25 MG, DAILY X21 DAYS, ORAL
     Route: 048
     Dates: start: 20071031

REACTIONS (7)
  - COUGH [None]
  - DIARRHOEA [None]
  - HAEMOGLOBIN DECREASED [None]
  - MUSCULOSKELETAL CHEST PAIN [None]
  - PYREXIA [None]
  - SINUS CONGESTION [None]
  - WHITE BLOOD CELL COUNT DECREASED [None]
